FAERS Safety Report 4838494-X (Version None)
Quarter: 2005Q4

REPORT INFORMATION
  Report Type: 
  Country: None (occurrence: None)
  Receive Date: 20051123
  Receipt Date: 20051123
  Transmission Date: 20060501
  Serious: Yes (Hospitalization)
  Sender: FDA-Public Use
  Company Number: None

PATIENT
  Age: 59 Year
  Sex: Male

DRUGS (5)
  1. GATIFLOXACIN [Suspect]
  2. INSULIN [Concomitant]
  3. OPTHALMICS [Concomitant]
  4. GLIPZIDE [Concomitant]
  5. MAALOX PLUS [Concomitant]

REACTIONS (1)
  - HEPATITIS [None]
